FAERS Safety Report 9120393 (Version 1)
Quarter: 2013Q1

REPORT INFORMATION
  Report Type: Spontaneous
  Country: JP (occurrence: JP)
  Receive Date: 20130226
  Receipt Date: 20130226
  Transmission Date: 20140127
  Serious: Yes (Other)
  Sender: FDA-Public Use
  Company Number: PHHY2013JP017500

PATIENT
  Age: 44 Year
  Sex: Male

DRUGS (1)
  1. RISPERIDONE [Suspect]
     Dosage: 6 MG, UNK

REACTIONS (3)
  - Irritability [Unknown]
  - Aggression [Not Recovered/Not Resolved]
  - Dystonia [Recovering/Resolving]
